FAERS Safety Report 17167515 (Version 2)
Quarter: 2019Q4

REPORT INFORMATION
  Report Type: Report from Study
  Country: None (occurrence: AU)
  Receive Date: 20191217
  Receipt Date: 20191229
  Transmission Date: 20200122
  Serious: Yes (Hospitalization, Other)
  Sender: FDA-Public Use
  Company Number: AU-ABBVIE-19K-008-3199417-00

PATIENT
  Sex: Female

DRUGS (1)
  1. IMBRUVICA [Suspect]
     Active Substance: IBRUTINIB
     Indication: MANTLE CELL LYMPHOMA
     Dosage: 140 MG X 4 / ORAL?/ DAILY
     Route: 048
     Dates: start: 20150101

REACTIONS (8)
  - Pneumonia pneumococcal [Unknown]
  - Septic shock [Unknown]
  - Contusion [Unknown]
  - Decreased appetite [Unknown]
  - Diarrhoea [Unknown]
  - Nail disorder [Unknown]
  - Skin lesion [Unknown]
  - Skin disorder [Unknown]
